FAERS Safety Report 7392984-7 (Version None)
Quarter: 2011Q2

REPORT INFORMATION
  Report Type: 
  Country: None (occurrence: None)
  Receive Date: 20110404
  Receipt Date: 20110328
  Transmission Date: 20111010
  Serious: Yes (Other)
  Sender: FDA-Public Use
  Company Number: NL-BAXTER-2010BH011231

PATIENT
  Age: 41 Year
  Sex: Female

DRUGS (12)
  1. GAMMAGARD LIQUID [Suspect]
     Route: 065
     Dates: start: 20100419, end: 20100419
  2. DUSPATAL [Concomitant]
  3. SIMVASTATIN [Concomitant]
  4. GAMMAGARD LIQUID [Suspect]
     Indication: MULTIPLE SCLEROSIS
     Route: 065
     Dates: start: 20100419, end: 20100419
  5. BACLOFEN [Concomitant]
  6. MOVICOLON [Concomitant]
  7. AMITRIPTYLINE [Concomitant]
  8. GAMMAGARD LIQUID [Suspect]
     Indication: OFF LABEL USE
     Route: 065
     Dates: start: 20100419, end: 20100419
  9. RIVOTRIL [Concomitant]
  10. UBRETID [Concomitant]
  11. GAMMAGARD LIQUID [Suspect]
     Route: 065
     Dates: start: 20100419, end: 20100419
  12. PANTOPRAZOLE SODIUM [Concomitant]

REACTIONS (7)
  - DIZZINESS [None]
  - SINUSITIS [None]
  - NAUSEA [None]
  - VISION BLURRED [None]
  - DYSGEUSIA [None]
  - HEMICEPHALALGIA [None]
  - HEADACHE [None]
